FAERS Safety Report 18603696 (Version 1)
Quarter: 2020Q4

REPORT INFORMATION
  Report Type: Spontaneous
  Country: US (occurrence: US)
  Receive Date: 20201210
  Receipt Date: 20201210
  Transmission Date: 20210114
  Serious: No
  Sender: FDA-Public Use
  Company Number: None

PATIENT
  Age: 44 Year
  Sex: Female
  Weight: 56.25 kg

DRUGS (7)
  1. FLUCONAZOLE TABLET USP 150 MG [Suspect]
     Active Substance: FLUCONAZOLE
     Indication: FUNGAL INFECTION
     Dosage: ?          QUANTITY:1 TABLET(S);OTHER FREQUENCY:1, IF NEED 3 DAYS;?
     Route: 048
     Dates: start: 20201027, end: 20201120
  2. SYNTHROID [Concomitant]
     Active Substance: LEVOTHYROXINE SODIUM
  3. ESCITALOPRAM [Concomitant]
     Active Substance: ESCITALOPRAM OXALATE
  4. VYVANSE [Concomitant]
     Active Substance: LISDEXAMFETAMINE DIMESYLATE
  5. VITAMIN D3 [Concomitant]
     Active Substance: CHOLECALCIFEROL
  6. LIOTHYRONINE [Concomitant]
     Active Substance: LIOTHYRONINE
  7. BUPROPION XL [Concomitant]
     Active Substance: BUPROPION

REACTIONS (3)
  - Pruritus [None]
  - Product formulation issue [None]
  - Drug hypersensitivity [None]

NARRATIVE: CASE EVENT DATE: 20201112
